FAERS Safety Report 5019618-0 (Version None)
Quarter: 2006Q2

REPORT INFORMATION
  Report Type: 
  Country: None (occurrence: None)
  Receive Date: 20060601
  Receipt Date: 20060517
  Transmission Date: 20061013
  Serious: Yes (Other)
  Sender: FDA-Public Use
  Company Number: 2006PV013986

PATIENT
  Age: 66 Year
  Sex: Male
  Weight: 136.0791 kg

DRUGS (6)
  1. BYETTA [Suspect]
     Indication: DIABETES MELLITUS NON-INSULIN-DEPENDENT
     Dosage: SEE IMAGE
     Route: 058
     Dates: start: 20060301, end: 20060301
  2. BYETTA [Suspect]
     Indication: DIABETES MELLITUS NON-INSULIN-DEPENDENT
     Dosage: SEE IMAGE
     Route: 058
     Dates: start: 20060401
  3. ACTOS [Concomitant]
  4. METFORMIN [Concomitant]
  5. HUMULIN [Concomitant]
  6. GLUCOSAMINE/ CHONDROITIN/MSM [Concomitant]

REACTIONS (12)
  - ASTHENIA [None]
  - ATRIAL FIBRILLATION [None]
  - BLOOD CREATININE INCREASED [None]
  - BLOOD MAGNESIUM DECREASED [None]
  - DECREASED APPETITE [None]
  - DIZZINESS [None]
  - DRY SKIN [None]
  - ERYTHEMA [None]
  - NAUSEA [None]
  - RASH MACULAR [None]
  - RASH PRURITIC [None]
  - WEIGHT DECREASED [None]
